FAERS Safety Report 17041253 (Version 1)
Quarter: 2019Q4

REPORT INFORMATION
  Report Type: Spontaneous
  Country: US (occurrence: US)
  Receive Date: 20191118
  Receipt Date: 20191118
  Transmission Date: 20200122
  Serious: Yes (Life-Threatening, Hospitalization)
  Sender: FDA-Public Use
  Company Number: US-CHEPLA-C20192985

PATIENT
  Age: 59 Year
  Sex: Female
  Weight: 66.65 kg

DRUGS (46)
  1. CARBOPLATIN. [Suspect]
     Active Substance: CARBOPLATIN
     Indication: NON-HODGKIN^S LYMPHOMA
     Route: 065
     Dates: start: 20190811
  2. LOSARTAN. [Concomitant]
     Active Substance: LOSARTAN
  3. LEVOTHYROXINE. [Concomitant]
     Active Substance: LEVOTHYROXINE
  4. SENOKOT (SENNOSIDE A+B) [Concomitant]
  5. PROCHLORPERAZINE MALEATE. [Concomitant]
     Active Substance: PROCHLORPERAZINE MALEATE
  6. FLUCONAZOLE. [Concomitant]
     Active Substance: FLUCONAZOLE
  7. LANTUS [Concomitant]
     Active Substance: INSULIN GLARGINE
  8. ENOXAPARIN SODIUM. [Concomitant]
     Active Substance: ENOXAPARIN SODIUM
  9. MEPERIDINE HYDROCHLORIDE (PETHIDINE HYDROCHLORIDE) [Concomitant]
  10. RITUXIMAB. [Suspect]
     Active Substance: RITUXIMAB
     Indication: NON-HODGKIN^S LYMPHOMA
     Route: 065
     Dates: start: 20190809
  11. POTASSIUM CHLORIDE (POTASSIUM CHLORIDE, SODIUM CHLORIDE) [Concomitant]
  12. LOPERAMIDE [Concomitant]
     Active Substance: LOPERAMIDE
  13. LEVOFLOXACIN. [Suspect]
     Active Substance: LEVOFLOXACIN
     Indication: ANTIBIOTIC PROPHYLAXIS
     Route: 065
     Dates: start: 20190904, end: 20191017
  14. LORATADINE. [Concomitant]
     Active Substance: LORATADINE
  15. FLUDARABINE PHOSPHATE. [Suspect]
     Active Substance: FLUDARABINE PHOSPHATE
     Indication: PRODUCT USED FOR UNKNOWN INDICATION
  16. BENDAMUSTINE [Suspect]
     Active Substance: BENDAMUSTINE
     Indication: PRODUCT USED FOR UNKNOWN INDICATION
  17. FAMOTIDINE. [Concomitant]
     Active Substance: FAMOTIDINE
  18. TYLENOL (CODEINE PHOSPHATE, PARACETAMOL) [Concomitant]
  19. HYDROMORPHONE HYDROCHLORIDE. [Concomitant]
     Active Substance: HYDROMORPHONE HYDROCHLORIDE
  20. ACETAMINOPHEN (BUTALBITAL, PARACETAMOL) [Concomitant]
  21. ACYCLOVIR (ACICLOVIR) [Concomitant]
  22. LORAZEPAM (LORAZEPAM, TEMAZEPAM) [Concomitant]
  23. MAGNESIUM OXIDE. [Concomitant]
     Active Substance: MAGNESIUM OXIDE
  24. ALLOPURINOL (ALLOPURINOL, BENZBROMARONE) [Concomitant]
  25. MAALOX (ALUMINIUM HYDROXIDE, MAGNESIUM HYDROXIDE, SIMETICONE) [Concomitant]
  26. PEGFILGRASTIM [Concomitant]
     Active Substance: PEGFILGRASTIM
  27. NORCO (HYDROCODONE BITARTRATE, PARACETAMOL) [Concomitant]
  28. GABAPENTIN. [Concomitant]
     Active Substance: GABAPENTIN
  29. MORPHINE SULFATE. [Concomitant]
     Active Substance: MORPHINE SULFATE
  30. ETOPOPHOS [Suspect]
     Active Substance: ETOPOSIDE PHOSPHATE
     Indication: NON-HODGKIN^S LYMPHOMA
     Route: 065
     Dates: start: 20190810
  31. BACTRIM DS [Suspect]
     Active Substance: SULFAMETHOXAZOLE\TRIMETHOPRIM
     Indication: ANTIBIOTIC PROPHYLAXIS
     Dosage: SUBJECT ADMINISTERED LAST DOSE OF STUDY MEDICATION LEVOFLOXACIN AND BACTRIM DS
     Dates: start: 20191026
  32. POLYETHYLENE GLYCOL (MACROGOL, PROPYLENE GLYCOL) [Concomitant]
  33. TRAMADOL. [Concomitant]
     Active Substance: TRAMADOL
  34. MAGNESIUM SULFATE. [Concomitant]
     Active Substance: MAGNESIUM SULFATE
  35. MEROPENEM. [Concomitant]
     Active Substance: MEROPENEM
  36. LISPRO INSULIN (INSULIN LISPRO) [Concomitant]
  37. ALBUMIN (ALBUMIN HUMAN) [Concomitant]
     Active Substance: ALBUMIN HUMAN
  38. CYCLOPHOSPHAMIDE. [Suspect]
     Active Substance: CYCLOPHOSPHAMIDE
     Indication: PRODUCT USED FOR UNKNOWN INDICATION
  39. BACTRIM DS [Suspect]
     Active Substance: SULFAMETHOXAZOLE\TRIMETHOPRIM
     Indication: ANTIBIOTIC PROPHYLAXIS
     Dosage: SUBJECT STARTED STUDY MEDICATION BACTRIM DS
     Dates: start: 20191021
  40. LEVOFLOXACIN. [Suspect]
     Active Substance: LEVOFLOXACIN
     Indication: ANTIBIOTIC PROPHYLAXIS
     Route: 065
     Dates: start: 20191021, end: 20191026
  41. ATORVASTATIN [Concomitant]
     Active Substance: ATORVASTATIN
  42. KETOROLAC TROMETHAMINE. [Concomitant]
     Active Substance: KETOROLAC TROMETHAMINE
  43. VANCOMYCIN HYDROCHLORIDE. [Concomitant]
     Active Substance: VANCOMYCIN HYDROCHLORIDE
  44. RITUXIMAB. [Suspect]
     Active Substance: RITUXIMAB
     Indication: NON-HODGKIN^S LYMPHOMA
     Route: 065
     Dates: start: 20190810
  45. ONDANSETRON [Concomitant]
     Active Substance: ONDANSETRON
  46. GLUCOVANCE (GLIBENCLAMIDE, METFORMIN HYDROCHLORIDE) [Concomitant]

REACTIONS (3)
  - Seroma [Unknown]
  - Pyrexia [Unknown]
  - Hypotension [Not Recovered/Not Resolved]

NARRATIVE: CASE EVENT DATE: 20191026
